FAERS Safety Report 8686547 (Version 4)
Quarter: 2013Q1

REPORT INFORMATION
  Report Type: Report from Study
  Country: JP (occurrence: JP)
  Receive Date: 20120726
  Receipt Date: 20130117
  Transmission Date: 20140127
  Serious: Yes (Other)
  Sender: FDA-Public Use
  Company Number: JP-009507513-1207JPN008131

PATIENT
  Age: 62 Year
  Sex: Male
  Weight: 65 kg

DRUGS (11)
  1. PEGINTRON [Suspect]
     Indication: CHRONIC HEPATITIS C
     Dosage: 1.5 MICROGRAM PER KILOGRAM, QW
     Route: 058
     Dates: start: 20120412, end: 20120926
  2. REBETOL [Suspect]
     Indication: CHRONIC HEPATITIS C
     Dosage: 800 MG, QD
     Route: 048
     Dates: start: 20120412, end: 20120501
  3. REBETOL [Suspect]
     Dosage: 400 MG, QD
     Route: 048
     Dates: start: 20120502, end: 20120620
  4. REBETOL [Suspect]
     Dosage: 600 MG, QD
     Route: 048
     Dates: start: 20120621, end: 20120801
  5. REBETOL [Suspect]
     Dosage: 400 MG, QD
     Route: 048
     Dates: start: 20120802, end: 20120905
  6. REBETOL [Suspect]
     Dosage: 600 MG, QD
     Route: 048
     Dates: start: 20120906, end: 20120912
  7. REBETOL [Suspect]
     Dosage: 800 MG, QD
     Route: 048
     Dates: start: 20120913, end: 20120926
  8. TELAVIC [Suspect]
     Indication: CHRONIC HEPATITIS C
     Dosage: 2000 MG, QD
     Route: 048
     Dates: start: 20120412, end: 20120703
  9. GASMOTIN [Concomitant]
     Indication: PROPHYLAXIS
     Dosage: 15 MG, QD
     Route: 048
     Dates: start: 20120412, end: 20120926
  10. ALLOPURINOL [Concomitant]
     Indication: PROPHYLAXIS
     Dosage: 300 MG, QD, FORMULATION: POR
     Route: 048
     Dates: end: 20120926
  11. CELESTAMINE (BETAMETHASONE (+) DEXCHLORPHENIRAMINE MALEATE) [Concomitant]
     Indication: PROPHYLAXIS
     Dosage: 3 DF, QD
     Route: 048

REACTIONS (2)
  - Rash [Recovering/Resolving]
  - Anaemia [Not Recovered/Not Resolved]
